FAERS Safety Report 11437539 (Version 1)
Quarter: 2015Q3

REPORT INFORMATION
  Report Type: Spontaneous
  Country: US (occurrence: US)
  Receive Date: 20150821
  Receipt Date: 20150821
  Transmission Date: 20151125
  Serious: No
  Sender: FDA-Public Use
  Company Number: US-ELI_LILLY_AND_COMPANY-US200705003612

PATIENT
  Sex: Female

DRUGS (20)
  1. PARACETAMOL [Concomitant]
     Active Substance: ACETAMINOPHEN
     Dosage: 500 MG, UNK
  2. STARLIX [Concomitant]
     Active Substance: NATEGLINIDE
     Dosage: 120 MG, 3/D
  3. METFORMIN [Concomitant]
     Active Substance: METFORMIN HYDROCHLORIDE
     Dosage: 500 MG, 2/D
  4. CYMBALTA [Suspect]
     Active Substance: DULOXETINE HYDROCHLORIDE
     Dosage: 60 MG, UNK
     Dates: start: 200702
  5. TEGRETOL [Concomitant]
     Active Substance: CARBAMAZEPINE
     Dosage: 1000 MG, UNK
  6. PENTASA [Concomitant]
     Active Substance: MESALAMINE
     Dosage: 4400 MG, UNK
  7. ATENOLOL. [Concomitant]
     Active Substance: ATENOLOL
     Dosage: 50 MG, DAILY (1/D)
  8. PROTONIX [Concomitant]
     Active Substance: PANTOPRAZOLE SODIUM
     Dosage: 40 MG, DAILY (1/D)
  9. LISINOPRIL. [Concomitant]
     Active Substance: LISINOPRIL
     Dosage: 40 MG, DAILY (1/D)
  10. AVANDIA [Concomitant]
     Active Substance: ROSIGLITAZONE MALEATE
     Dosage: 1 MG, 2/D
  11. NAPROXYN [Concomitant]
  12. ALLEGRA [Concomitant]
     Active Substance: FEXOFENADINE HYDROCHLORIDE
     Dosage: 60 MG, 2/D
  13. TUSSIN [Concomitant]
     Active Substance: GUAIFENESIN
     Dosage: UNK, AS NEEDED
  14. TRAMADOL. [Concomitant]
     Active Substance: TRAMADOL
     Dosage: 50 MG, EVERY 4 HRS
  15. CYMBALTA [Suspect]
     Active Substance: DULOXETINE HYDROCHLORIDE
     Indication: BIPOLAR DISORDER
     Dosage: 120 MG, DAILY (1/D)
     Dates: start: 2004, end: 200702
  16. PROMETHAZINE [Concomitant]
     Active Substance: PROMETHAZINE\PROMETHAZINE HYDROCHLORIDE
     Dosage: 25 MG, 2/D
  17. EFFEXOR XR [Concomitant]
     Active Substance: VENLAFAXINE HYDROCHLORIDE
     Dosage: 37.5 MG, DAILY (1/D)
  18. LIPITOR [Concomitant]
     Active Substance: ATORVASTATIN CALCIUM
  19. LOPERAMIDE [Concomitant]
     Active Substance: LOPERAMIDE
  20. DEXAMETHASONE VALERATE [Concomitant]
     Active Substance: DEXAMETHASONE VALERATE

REACTIONS (5)
  - Drug effect incomplete [Unknown]
  - Blood glucose increased [Unknown]
  - Insomnia [Unknown]
  - Asthenia [Unknown]
  - Activities of daily living impaired [Unknown]

NARRATIVE: CASE EVENT DATE: 2007
